FAERS Safety Report 19053307 (Version 1)
Quarter: 2021Q1

REPORT INFORMATION
  Report Type: Spontaneous
  Country: US (occurrence: US)
  Receive Date: 20210324
  Receipt Date: 20210324
  Transmission Date: 20210420
  Serious: Yes (Other)
  Sender: FDA-Public Use
  Company Number: US-TEVA-2021-US-1892982

PATIENT
  Sex: Female

DRUGS (8)
  1. OXYCODONE [Suspect]
     Active Substance: OXYCODONE
     Route: 065
  2. HYDROCODONE BITARTRATE AND ACETAMINOPHEN [Suspect]
     Active Substance: ACETAMINOPHEN\HYDROCODONE BITARTRATE
     Route: 065
  3. BUPRENORPHINE. [Suspect]
     Active Substance: BUPRENORPHINE
     Route: 062
  4. OXY IR [Suspect]
     Active Substance: OXYCODONE HYDROCHLORIDE
     Dosage: FORM OF ADMIN: IMMEDIATE?RELEASE
     Route: 065
  5. MORPHINE [Suspect]
     Active Substance: MORPHINE
     Dosage: FORM OF ADMIN: EXTENDED?RELEASE
     Route: 065
  6. SUBUTEX [Suspect]
     Active Substance: BUPRENORPHINE HYDROCHLORIDE
     Route: 065
  7. TRAMADOL ER [Suspect]
     Active Substance: TRAMADOL HYDROCHLORIDE
     Dosage: FORM OF ADMIN: EXTENDED?RELEASE
     Route: 065
  8. OXY APAP [Suspect]
     Active Substance: ACETAMINOPHEN\OXYCODONE HYDROCHLORIDE
     Route: 065

REACTIONS (6)
  - Economic problem [Unknown]
  - Drug dependence [Unknown]
  - Mental impairment [Unknown]
  - Fear [Unknown]
  - Substance use disorder [Unknown]
  - Personal relationship issue [Unknown]
